FAERS Safety Report 6300362-4 (Version None)
Quarter: 2009Q3

REPORT INFORMATION
  Report Type: 
  Country: None (occurrence: None)
  Receive Date: 20090806
  Receipt Date: 20080915
  Transmission Date: 20100115
  Serious: Yes (Hospitalization)
  Sender: FDA-Public Use
  Company Number: US-ABBOTT-08P-163-0467398-00

PATIENT
  Sex: Female
  Weight: 47.216 kg

DRUGS (11)
  1. DEPAKOTE ER [Suspect]
     Indication: DRUG USE FOR UNKNOWN INDICATION
     Dates: start: 20080508
  2. DEPAKOTE ER [Suspect]
     Indication: BIPOLAR DISORDER
     Route: 048
     Dates: end: 20070101
  3. DEPAKOTE ER [Suspect]
     Dosage: 1 TABLET
     Route: 048
     Dates: start: 20070907, end: 20080507
  4. DEPAKOTE ER [Suspect]
     Dosage: 1 TABLET
     Route: 048
     Dates: start: 20080508
  5. TOPIRAMATE [Concomitant]
     Indication: MIGRAINE
     Route: 048
  6. QUETIAPINE FUMARATE [Concomitant]
     Indication: MOOD ALTERED
     Route: 048
     Dates: start: 20070101
  7. ALPRAZOLAM [Concomitant]
     Indication: ANXIETY
     Route: 048
  8. DULOXETINE HYDROCHLORIDE [Concomitant]
     Indication: DEPRESSION
     Route: 048
     Dates: start: 20080623
  9. TOPIRAMATE [Concomitant]
  10. ZOLPIDEM TARTRATE [Concomitant]
     Indication: DRUG USE FOR UNKNOWN INDICATION
     Dates: end: 20080623
  11. TRAZODONE HCL [Concomitant]
     Indication: DRUG USE FOR UNKNOWN INDICATION

REACTIONS (2)
  - ACUTE HEPATIC FAILURE [None]
  - WEIGHT INCREASED [None]
